FAERS Safety Report 9471120 (Version 1)
Quarter: 2013Q3

REPORT INFORMATION
  Report Type: Spontaneous
  Country: US (occurrence: US)
  Receive Date: 20130822
  Receipt Date: 20130822
  Transmission Date: 20140515
  Serious: Yes (Other)
  Sender: FDA-Public Use
  Company Number: US-BAXTER-2013BAX032321

PATIENT
  Age: 50 Year
  Sex: Male
  Weight: 104 kg

DRUGS (5)
  1. CEFAZOLIN INJECTION [Suspect]
     Indication: PRODUCT USED FOR UNKNOWN INDICATION
     Route: 042
  2. SUPRANE_DESFLURANE 100.00 %_INHALATION VAPOUR, LIQUID_BOTTLE, GLASS [Suspect]
     Indication: MAINTENANCE OF ANAESTHESIA
     Dosage: 4.5% TO 6.0%
  3. FENTANYL [Suspect]
     Indication: INDUCTION OF ANAESTHESIA
     Route: 042
  4. PROPOFOL [Suspect]
     Indication: INDUCTION OF ANAESTHESIA
  5. ROCURONIUM [Suspect]
     Indication: HYPOTONIA

REACTIONS (1)
  - Anaphylactic reaction [Recovered/Resolved]
